FAERS Safety Report 22028830 (Version 1)
Quarter: 2023Q1

REPORT INFORMATION
  Report Type: Spontaneous
  Country: SE (occurrence: SE)
  Receive Date: 20230223
  Receipt Date: 20230223
  Transmission Date: 20230417
  Serious: Yes (Life-Threatening, Other)
  Sender: FDA-Public Use
  Company Number: None

PATIENT
  Age: 30 Year
  Sex: Female

DRUGS (11)
  1. SPRYCEL [Suspect]
     Active Substance: DASATINIB
     Indication: Product used for unknown indication
     Dates: start: 20220914
  2. ENALAPRIL MALEATE [Concomitant]
     Active Substance: ENALAPRIL MALEATE
     Indication: Product used for unknown indication
     Dosage: 1X1TV
     Dates: start: 20180116
  3. DESLORATADIN APOFRI [Concomitant]
     Indication: Product used for unknown indication
     Dosage: 1X12VBTV
     Dates: start: 20221223, end: 20230124
  4. LOPERAMIDE [Concomitant]
     Active Substance: LOPERAMIDE
     Indication: Product used for unknown indication
     Dosage: 1VBTV
     Dates: start: 20211108, end: 20230203
  5. JARDIANCE [Concomitant]
     Active Substance: EMPAGLIFLOZIN
     Indication: Product used for unknown indication
     Dosage: 1X1TV
     Dates: start: 20221223, end: 20230125
  6. NOVORAPID [Concomitant]
     Active Substance: INSULIN ASPART
     Indication: Product used for unknown indication
     Dosage: 4-6 E  VBTV
     Dates: start: 20180115, end: 20230125
  7. LEVOTHYROXINE SODIUM [Concomitant]
     Active Substance: LEVOTHYROXINE SODIUM
     Indication: Product used for unknown indication
     Dosage: 1X1TV
     Dates: start: 20221223, end: 20230129
  8. HYDROCORTISONE [Concomitant]
     Active Substance: HYDROCORTISONE
     Indication: Product used for unknown indication
     Dates: start: 20220323, end: 20230130
  9. NATRIUMKLORID ABCUR [Concomitant]
     Indication: Product used for unknown indication
     Dosage: 2X3TV
     Dates: start: 20221222, end: 20230125
  10. LEVOTHYROXINE SODIUM [Concomitant]
     Active Substance: LEVOTHYROXINE SODIUM
     Indication: Product used for unknown indication
     Dates: start: 20221223, end: 20230129
  11. OZEMPIC [Concomitant]
     Active Substance: SEMAGLUTIDE
     Indication: Product used for unknown indication
     Dosage: 1VAR7D
     Dates: start: 20221223

REACTIONS (2)
  - Electrocardiogram QT prolonged [Recovered/Resolved]
  - Diarrhoea [Recovered/Resolved]

NARRATIVE: CASE EVENT DATE: 20230121
